FAERS Safety Report 19036417 (Version 1)
Quarter: 2021Q1

REPORT INFORMATION
  Report Type: Spontaneous
  Country: US (occurrence: US)
  Receive Date: 20210319
  Receipt Date: 20210319
  Transmission Date: 20210420
  Serious: Yes (Hospitalization)
  Sender: FDA-Public Use
  Company Number: None

PATIENT
  Age: 53 Year
  Sex: Male

DRUGS (14)
  1. QUETIAPINE. [Suspect]
     Active Substance: QUETIAPINE
  2. CARVEDILOL. [Concomitant]
     Active Substance: CARVEDILOL
  3. ESZOPICLONE. [Concomitant]
     Active Substance: ESZOPICLONE
  4. LISINOPRIL. [Concomitant]
     Active Substance: LISINOPRIL
  5. AMIODARONE [Concomitant]
     Active Substance: AMIODARONE
  6. ASPIRIN. [Concomitant]
     Active Substance: ASPIRIN
  7. LAMOTRIGINE. [Concomitant]
     Active Substance: LAMOTRIGINE
  8. SERTRALINE [Concomitant]
     Active Substance: SERTRALINE HYDROCHLORIDE
  9. FUROSEMIDE. [Concomitant]
     Active Substance: FUROSEMIDE
  10. CINACALCET 30MG [Suspect]
     Active Substance: CINACALCET
     Route: 048
  11. LEVOTHYROXINE. [Concomitant]
     Active Substance: LEVOTHYROXINE
  12. VITAMIN D [Concomitant]
     Active Substance: VITAMIN D NOS
  13. ELIQUIS [Concomitant]
     Active Substance: APIXABAN
  14. ARTOVASTATIN [Concomitant]

REACTIONS (2)
  - Dialysis [None]
  - Back disorder [None]

NARRATIVE: CASE EVENT DATE: 20210318
